FAERS Safety Report 5085605-X (Version None)
Quarter: 2006Q3

REPORT INFORMATION
  Report Type: 
  Country: None (occurrence: None)
  Receive Date: 20060822
  Receipt Date: 20060815
  Transmission Date: 20061208
  Serious: Yes (Other)
  Sender: FDA-Public Use
  Company Number: GB-GLAXOSMITHKLINE-B0434706A

PATIENT
  Sex: Female

DRUGS (4)
  1. ZIAGEN [Suspect]
     Dosage: 600MG PER DAY
     Route: 048
  2. VIREAD [Suspect]
     Dosage: 300MG PER DAY
     Route: 048
  3. ATAZANAVIR [Suspect]
     Dosage: 200MG PER DAY
     Route: 048
  4. NORVIR [Suspect]
     Dosage: 100MG PER DAY
     Route: 048

REACTIONS (4)
  - DRUG EXPOSURE DURING PREGNANCY [None]
  - HAEMORRHAGE [None]
  - PREMATURE SEPARATION OF PLACENTA [None]
  - STILLBIRTH [None]
